FAERS Safety Report 21660857 (Version 1)
Quarter: 2022Q4

REPORT INFORMATION
  Report Type: Spontaneous
  Country: JP (occurrence: JP)
  Receive Date: 20221130
  Receipt Date: 20221130
  Transmission Date: 20230112
  Serious: Yes (Hospitalization, Disabling, Other)
  Sender: FDA-Public Use
  Company Number: JP-CHUGAI-2022042704

PATIENT
  Age: 8 Decade
  Sex: Male

DRUGS (3)
  1. POLIVY [Suspect]
     Active Substance: POLATUZUMAB VEDOTIN-PIIQ
     Indication: Diffuse large B-cell lymphoma
     Dosage: UNK, SINGLE
     Route: 041
     Dates: start: 202204, end: 202204
  2. RITUXIMAB [Concomitant]
     Active Substance: RITUXIMAB
     Indication: Diffuse large B-cell lymphoma
     Dosage: UNK, SINGLE
     Route: 041
     Dates: start: 202204, end: 202204
  3. BENDAMUSTINE HYDROCHLORIDE [Concomitant]
     Active Substance: BENDAMUSTINE HYDROCHLORIDE
     Indication: Diffuse large B-cell lymphoma
     Dosage: UNK, SINGLE
     Route: 041
     Dates: start: 202204, end: 202204

REACTIONS (2)
  - Purpura fulminans [Not Recovered/Not Resolved]
  - Pneumococcal infection [Recovered/Resolved]
